FAERS Safety Report 9920388 (Version 2)
Quarter: 2014Q1

REPORT INFORMATION
  Report Type: Spontaneous
  Country: US (occurrence: US)
  Receive Date: 20140224
  Receipt Date: 20140224
  Transmission Date: 20141002
  Serious: Yes (Other)
  Sender: FDA-Public Use
  Company Number: US-LUNDBECK-DKLU1094810

PATIENT
  Age: 10 Year
  Sex: Male
  Weight: 26 kg

DRUGS (12)
  1. ONFI (ORAL SUSPENSION) [Suspect]
     Indication: LENNOX-GASTAUT SYNDROME
     Route: 048
     Dates: start: 20130918
  2. ONFI (ORAL SUSPENSION) [Suspect]
     Route: 048
     Dates: start: 20131008, end: 20131013
  3. ONFI (ORAL SUSPENSION) [Suspect]
     Dates: start: 20130908, end: 20131017
  4. ONFI [Suspect]
     Indication: LENNOX-GASTAUT SYNDROME
     Route: 048
     Dates: start: 20120316, end: 20130917
  5. ONFI [Suspect]
     Route: 048
     Dates: end: 20131007
  6. ONFI [Suspect]
     Route: 048
     Dates: start: 20131014, end: 20131016
  7. ONFI [Suspect]
  8. KEPPRA [Concomitant]
     Indication: PRODUCT USED FOR UNKNOWN INDICATION
     Route: 048
  9. FELBATOL [Concomitant]
     Indication: PRODUCT USED FOR UNKNOWN INDICATION
     Route: 048
  10. PULMICORT [Concomitant]
     Indication: PRODUCT USED FOR UNKNOWN INDICATION
     Route: 050
  11. MULTIVITAMIN [Concomitant]
     Indication: PRODUCT USED FOR UNKNOWN INDICATION
     Route: 048
  12. CARNITOR [Concomitant]
     Indication: PRODUCT USED FOR UNKNOWN INDICATION
     Route: 048

REACTIONS (1)
  - Erythema multiforme [Recovered/Resolved]
